FAERS Safety Report 16379475 (Version 2)
Quarter: 2019Q2

REPORT INFORMATION
  Report Type: Spontaneous
  Country: US (occurrence: US)
  Receive Date: 20190531
  Receipt Date: 20190617
  Transmission Date: 20190711
  Serious: No
  Sender: FDA-Public Use
  Company Number: US-ACTELION-A-US2019-190069

PATIENT
  Age: 38 Year
  Sex: Female

DRUGS (3)
  1. UPTRAVI [Suspect]
     Active Substance: SELEXIPAG
     Indication: PRODUCT USED FOR UNKNOWN INDICATION
     Dosage: 800 MCG, BID
     Route: 048
     Dates: start: 20190418
  2. AMBRISENTAN [Suspect]
     Active Substance: AMBRISENTAN
     Indication: PULMONARY ARTERIAL HYPERTENSION
     Dosage: 10 MG, QD
     Route: 048
     Dates: start: 20161207
  3. TADALAFIL. [Concomitant]
     Active Substance: TADALAFIL

REACTIONS (9)
  - Nausea [Not Recovered/Not Resolved]
  - Decreased appetite [Unknown]
  - Paranasal sinus discomfort [Unknown]
  - Headache [Not Recovered/Not Resolved]
  - Hot flush [Not Recovered/Not Resolved]
  - Pain in jaw [Not Recovered/Not Resolved]
  - Musculoskeletal stiffness [Unknown]
  - Migraine [Not Recovered/Not Resolved]
  - Yawning [Not Recovered/Not Resolved]
